FAERS Safety Report 6392125-9 (Version None)
Quarter: 2009Q4

REPORT INFORMATION
  Report Type: 
  Country: None (occurrence: None)
  Receive Date: 20091007
  Receipt Date: 20091001
  Transmission Date: 20100525
  Serious: Yes (Other)
  Sender: FDA-Public Use
  Company Number: CN-BRISTOL-MYERS SQUIBB COMPANY-14351506

PATIENT
  Age: 45 Year
  Sex: Female

DRUGS (3)
  1. ERBITUX [Suspect]
     Indication: PANCREATIC CARCINOMA METASTATIC
     Dosage: DISCONTINUED AFTER 1 MONTH.
  2. ERLOTINIB [Suspect]
     Indication: PANCREATIC CARCINOMA METASTATIC
     Dosage: 150MG/DAY WAS RESTARTED AND WITHDRAWAL FOR 1 WEEK THEN REINTRODUCED AT THE LOWER DOSE OF 100MG/DAY.
  3. GEMCITABINE [Suspect]
     Indication: PANCREATIC CARCINOMA METASTATIC

REACTIONS (2)
  - EXFOLIATIVE RASH [None]
  - MALIGNANT NEOPLASM PROGRESSION [None]
